FAERS Safety Report 8117521-0 (Version None)
Quarter: 2012Q1

REPORT INFORMATION
  Report Type: 
  Country: None (occurrence: None)
  Receive Date: 20120207
  Receipt Date: 20120127
  Transmission Date: 20120608
  Serious: No
  Sender: FDA-Public Use
  Company Number: US-BIOGENIDEC-2011BI031924

PATIENT
  Age: 31 Year
  Sex: Female

DRUGS (2)
  1. TYSABRI [Suspect]
     Indication: MULTIPLE SCLEROSIS
     Route: 042
     Dates: start: 20110812
  2. RELPAX [Concomitant]
     Indication: HEADACHE

REACTIONS (6)
  - CHEST DISCOMFORT [None]
  - MUSCULOSKELETAL PAIN [None]
  - DISORIENTATION [None]
  - HEADACHE [None]
  - FATIGUE [None]
  - DYSPNOEA [None]
